FAERS Safety Report 7323307-7 (Version None)
Quarter: 2011Q1

REPORT INFORMATION
  Report Type: 
  Country: None (occurrence: None)
  Receive Date: 20110217
  Receipt Date: 20110124
  Transmission Date: 20110831
  Serious: Yes (Hospitalization)
  Sender: FDA-Public Use
  Company Number: LEO-2011-00163

PATIENT
  Age: 41 Year
  Sex: Female
  Weight: 38.3 kg

DRUGS (2)
  1. INNOHEP [Suspect]
     Indication: EMBOLISM VENOUS
     Dosage: 8000 IU 98000 IU,1 IN 1D),SUBCUTANEOUS ; 7000 IU (7000 IU,1 IN 1 D),SUBCUTANEOUS
     Route: 058
     Dates: start: 20100831, end: 20110121
  2. INNOHEP [Suspect]
     Indication: EMBOLISM VENOUS
     Dosage: 8000 IU 98000 IU,1 IN 1D),SUBCUTANEOUS ; 7000 IU (7000 IU,1 IN 1 D),SUBCUTANEOUS
     Route: 058
     Dates: start: 20110122, end: 20110123

REACTIONS (6)
  - VERTIGO [None]
  - GASTROINTESTINAL HAEMORRHAGE [None]
  - HAEMATEMESIS [None]
  - MELAENA [None]
  - GASTRODUODENITIS [None]
  - DUODENAL ULCER [None]
